FAERS Safety Report 7959175 (Version 5)
Quarter: 2015Q2

REPORT INFORMATION
  Report Type: Report from Study
  Country: US (occurrence: US)
  Receive Date: 20110525
  Receipt Date: 20150420
  Transmission Date: 20150821
  Serious: Yes (Hospitalization)
  Sender: FDA-Public Use
  Company Number: US-BIOGENIDEC-2011BI018613

PATIENT
  Age: 45 Year
  Sex: Female

DRUGS (2)
  1. AVONEX [Suspect]
     Active Substance: INTERFERON BETA-1A
     Indication: MULTIPLE SCLEROSIS
     Route: 030
     Dates: start: 20020514, end: 2003
  2. AVONEX [Suspect]
     Active Substance: INTERFERON BETA-1A
     Indication: MULTIPLE SCLEROSIS
     Route: 030
     Dates: start: 2003

REACTIONS (16)
  - Pneumonia [Recovered/Resolved]
  - Ligament sprain [Recovered/Resolved with Sequelae]
  - Hordeolum [Recovered/Resolved]
  - Sinusitis [Recovered/Resolved]
  - Decreased immune responsiveness [Not Recovered/Not Resolved]
  - Neck pain [Not Recovered/Not Resolved]
  - Localised infection [Recovered/Resolved]
  - Stress [Not Recovered/Not Resolved]
  - Bronchitis [Recovered/Resolved]
  - Kidney infection [Recovered/Resolved]
  - Pyrexia [Recovered/Resolved]
  - Brain neoplasm benign [Unknown]
  - Gastroenteritis viral [Not Recovered/Not Resolved]
  - Immune system disorder [Not Recovered/Not Resolved]
  - Anxiety [Not Recovered/Not Resolved]
  - Depression [Not Recovered/Not Resolved]

NARRATIVE: CASE EVENT DATE: 2010
